FAERS Safety Report 18527955 (Version 1)
Quarter: 2020Q4

REPORT INFORMATION
  Report Type: Spontaneous
  Country: PT (occurrence: PT)
  Receive Date: 20201120
  Receipt Date: 20201120
  Transmission Date: 20210114
  Serious: Yes (Other)
  Sender: FDA-Public Use
  Company Number: PT-HIKMA PHARMACEUTICALS USA INC.-PT-H14001-20-52629

PATIENT
  Age: 49 Year
  Sex: Male

DRUGS (3)
  1. ERLOTINIB [Concomitant]
     Active Substance: ERLOTINIB
     Indication: CHEMOTHERAPY
     Route: 065
  2. ZOLEDRONIC ACID [Suspect]
     Active Substance: ZOLEDRONIC ACID
     Indication: METASTASES TO BONE
     Dosage: 4 MG, EVERY 3/3 WEEKS (12 TREATMENTS)
     Route: 042
     Dates: start: 201005, end: 201103
  3. ZOLEDRONIC ACID [Suspect]
     Active Substance: ZOLEDRONIC ACID
     Indication: LUNG ADENOCARCINOMA STAGE IV
     Dosage: 4 MG, EVERY 3/3 WEEKS (12 TREATMENTS)
     Route: 042

REACTIONS (4)
  - Pain in jaw [Recovered/Resolved]
  - Trismus [Recovered/Resolved]
  - Osteonecrosis of jaw [Recovered/Resolved]
  - Swelling [Recovered/Resolved]

NARRATIVE: CASE EVENT DATE: 201103
